FAERS Safety Report 8808770 (Version 1)
Quarter: 2012Q4

REPORT INFORMATION
  Report Type: Spontaneous
  Country: GB (occurrence: None)
  Receive Date: 20120920
  Receipt Date: 20120920
  Transmission Date: 20130627
  Serious: Yes (Hospitalization, Other)
  Sender: FDA-Public Use
  Company Number: 2012MA010980

PATIENT
  Age: 18 Year
  Sex: Female

DRUGS (1)
  1. FEVERALL [Suspect]
     Indication: INTENTIONAL MISUSE

REACTIONS (3)
  - Drug level increased [None]
  - Exposure during pregnancy [None]
  - Incorrect dose administered [None]
